FAERS Safety Report 13954226 (Version 1)
Quarter: 2017Q3

REPORT INFORMATION
  Report Type: Spontaneous
  Country: NO (occurrence: NO)
  Receive Date: 20170911
  Receipt Date: 20170911
  Transmission Date: 20171128
  Serious: Yes (Other)
  Sender: FDA-Public Use
  Company Number: NO-SUNOVION-2017SUN003949

PATIENT

DRUGS (4)
  1. LATUDA [Suspect]
     Active Substance: LURASIDONE HYDROCHLORIDE
     Indication: PSYCHOTIC DISORDER
     Dosage: 37 MG, QD
     Route: 048
     Dates: start: 20170720, end: 20170809
  2. VALLERGAN [Concomitant]
     Active Substance: TRIMEPRAZINE
     Indication: INSOMNIA
     Dosage: 30 MG, QD
     Route: 048
     Dates: start: 201706, end: 20170719
  3. AKINETON [Concomitant]
     Active Substance: BIPERIDEN HYDROCHLORIDE
     Indication: AKATHISIA
     Dosage: 2 MG, QD
     Route: 048
     Dates: start: 201706, end: 20170719
  4. METHADONE [Concomitant]

REACTIONS (1)
  - Urinary retention [Recovering/Resolving]

NARRATIVE: CASE EVENT DATE: 201707
